FAERS Safety Report 21052890 (Version 1)
Quarter: 2022Q3

REPORT INFORMATION
  Report Type: Spontaneous
  Country: JP (occurrence: JP)
  Receive Date: 20220707
  Receipt Date: 20220707
  Transmission Date: 20221026
  Serious: Yes (Other)
  Sender: FDA-Public Use
  Company Number: JP-JNJFOC-20220703705

PATIENT
  Sex: Male

DRUGS (6)
  1. RISPERDAL [Suspect]
     Active Substance: RISPERIDONE
     Indication: Product used for unknown indication
     Route: 048
     Dates: start: 202102, end: 20210916
  2. RISPERDAL [Suspect]
     Active Substance: RISPERIDONE
     Route: 048
     Dates: start: 20210917, end: 20211021
  3. RISPERDAL [Suspect]
     Active Substance: RISPERIDONE
     Route: 048
     Dates: start: 20211022, end: 2021
  4. RISPERDAL [Suspect]
     Active Substance: RISPERIDONE
     Route: 048
     Dates: start: 2021
  5. LATUDA [Suspect]
     Active Substance: LURASIDONE HYDROCHLORIDE
     Indication: Product used for unknown indication
     Route: 048
     Dates: start: 20210917, end: 20210930
  6. LATUDA [Suspect]
     Active Substance: LURASIDONE HYDROCHLORIDE
     Route: 048
     Dates: start: 20211001, end: 20211021

REACTIONS (13)
  - Hallucination, auditory [Unknown]
  - Aggression [Unknown]
  - Impulsive behaviour [Unknown]
  - Insomnia [Unknown]
  - Diarrhoea [Unknown]
  - Face oedema [Unknown]
  - Depression [Unknown]
  - Soliloquy [Unknown]
  - Malaise [Unknown]
  - Gait disturbance [Unknown]
  - Reduced facial expression [Unknown]
  - Decreased appetite [Unknown]
  - Restlessness [Unknown]

NARRATIVE: CASE EVENT DATE: 20210101
